FAERS Safety Report 4303939-0 (Version None)
Quarter: 2004Q1

REPORT INFORMATION
  Report Type: 
  Country: None (occurrence: None)
  Receive Date: 20040223
  Receipt Date: 20031125
  Transmission Date: 20041129
  Serious: No
  Sender: FDA-Public Use
  Company Number: PHEH2003US10950

PATIENT
  Sex: Female

DRUGS (4)
  1. ZELNORM [Suspect]
  2. VIOXX/USA [Concomitant]
  3. PREVACID [Concomitant]
  4. CLARITIN/USA [Concomitant]

REACTIONS (1)
  - ALOPECIA [None]
